FAERS Safety Report 17376438 (Version 1)
Quarter: 2020Q1

REPORT INFORMATION
  Report Type: Spontaneous
  Country: US (occurrence: US)
  Receive Date: 20200205
  Receipt Date: 20200205
  Transmission Date: 20200409
  Serious: No
  Sender: FDA-Public Use
  Company Number: None

PATIENT
  Age: 49 Year
  Sex: Male

DRUGS (1)
  1. COSENTYX [Suspect]
     Active Substance: SECUKINUMAB
     Dosage: ?          OTHER FREQUENCY:4 WEEKS;?
     Route: 058

REACTIONS (2)
  - Therapy cessation [None]
  - Product administration error [None]

NARRATIVE: CASE EVENT DATE: 20200205
